FAERS Safety Report 6134774-9 (Version None)
Quarter: 2009Q1

REPORT INFORMATION
  Report Type: 
  Country: None (occurrence: None)
  Receive Date: 20090327
  Receipt Date: 20090323
  Transmission Date: 20090719
  Serious: Yes (Hospitalization)
  Sender: FDA-Public Use
  Company Number: US-GILEAD-2008-0019124

PATIENT
  Sex: Female

DRUGS (11)
  1. LETAIRIS [Suspect]
     Indication: COR PULMONALE CHRONIC
     Route: 048
     Dates: start: 20080313
  2. REVATIO [Concomitant]
  3. FUROSEMIDE [Concomitant]
  4. SPIRONOLACTONE [Concomitant]
  5. NIFEDIPINE [Concomitant]
  6. HYDRALAZINE HCL [Concomitant]
  7. DIGOXIN [Concomitant]
  8. ALBUTEROL [Concomitant]
  9. PREDNISONE [Concomitant]
  10. ACTONEL [Concomitant]
  11. VITAMIN D [Concomitant]

REACTIONS (1)
  - CHEST DISCOMFORT [None]
